FAERS Safety Report 5132410-1 (Version None)
Quarter: 2006Q4

REPORT INFORMATION
  Report Type: 
  Country: None (occurrence: None)
  Receive Date: 20061023
  Receipt Date: 20061010
  Transmission Date: 20070319
  Serious: Yes (Hospitalization)
  Sender: FDA-Public Use
  Company Number: JP-BAYER-200614515GDS

PATIENT
  Sex: Female

DRUGS (1)
  1. ASPIRIN [Suspect]
     Indication: ANGINA PECTORIS
     Route: 048

REACTIONS (7)
  - ABDOMINAL PAIN LOWER [None]
  - HYPOCHROMIC ANAEMIA [None]
  - ILEAL STENOSIS [None]
  - ILEAL ULCER [None]
  - INTESTINAL DILATATION [None]
  - MUCOSAL EROSION [None]
  - WEIGHT DECREASED [None]
